FAERS Safety Report 6083213-5 (Version None)
Quarter: 2009Q1

REPORT INFORMATION
  Report Type: 
  Country: None (occurrence: None)
  Receive Date: 20090219
  Receipt Date: 20090210
  Transmission Date: 20090719
  Serious: Yes (Hospitalization)
  Sender: FDA-Public Use
  Company Number: US-JNJFOC-20081006197

PATIENT
  Sex: Male
  Weight: 149.69 kg

DRUGS (17)
  1. DURAGESIC-100 [Suspect]
     Indication: SLE ARTHRITIS
     Route: 062
  2. DURAGESIC-100 [Suspect]
     Indication: SPINAL COLUMN STENOSIS
     Route: 062
  3. FENTANYL TRANSDERMAL SYSTEM [Suspect]
     Indication: SLE ARTHRITIS
     Route: 062
  4. FENTANYL TRANSDERMAL SYSTEM [Suspect]
     Indication: SPINAL COLUMN STENOSIS
     Route: 062
  5. FENTANYL TRANSDERMAL SYSTEM [Suspect]
     Indication: SLE ARTHRITIS
     Route: 062
  6. FENTANYL TRANSDERMAL SYSTEM [Suspect]
     Indication: SPINAL COLUMN STENOSIS
     Route: 062
  7. CEPHALEXIN [Suspect]
     Indication: DRUG USE FOR UNKNOWN INDICATION
     Route: 048
  8. CHLOROQUINE PHOSPHATE [Concomitant]
     Indication: SYSTEMIC LUPUS ERYTHEMATOSUS
     Route: 048
  9. INDOMETHACIN [Concomitant]
     Indication: INFLAMMATION
     Dosage: WITH FOOD
     Route: 048
  10. ZESTRIL [Concomitant]
     Indication: HYPERTENSION
     Route: 048
  11. VICODIN ES [Concomitant]
     Indication: PAIN
     Dosage: ONE P.O. Q 4 HOURS
     Route: 048
  12. SKELAXIN [Concomitant]
  13. SOTALOL HCL [Concomitant]
     Route: 065
  14. SULFATRIM [Concomitant]
     Route: 065
  15. ASPIRIN [Concomitant]
  16. LISINOPRIL [Concomitant]
  17. COUMADIN [Concomitant]

REACTIONS (12)
  - ANAEMIA [None]
  - ATRIAL FIBRILLATION [None]
  - ENDOCARDITIS STAPHYLOCOCCAL [None]
  - HAEMATOMA INFECTION [None]
  - HYPERTENSIVE HEART DISEASE [None]
  - LEUKOPENIA [None]
  - OBESITY [None]
  - RASH [None]
  - SLEEP APNOEA SYNDROME [None]
  - STAPHYLOCOCCAL INFECTION [None]
  - SYSTEMIC LUPUS ERYTHEMATOSUS [None]
  - WEIGHT DECREASED [None]
